FAERS Safety Report 13912617 (Version 1)
Quarter: 2017Q3

REPORT INFORMATION
  Report Type: Spontaneous
  Country: US (occurrence: US)
  Receive Date: 20170828
  Receipt Date: 20170828
  Transmission Date: 20171127
  Serious: No
  Sender: FDA-Public Use
  Company Number: US-BAYER-2017-162017

PATIENT
  Age: 58 Year
  Sex: Male
  Weight: 88 kg

DRUGS (2)
  1. METHIMAZOLE. [Concomitant]
     Active Substance: METHIMAZOLE
     Dosage: UNK
  2. MIRALAX [Suspect]
     Active Substance: POLYETHYLENE GLYCOL 3350
     Indication: GASTROINTESTINAL DISORDER
     Dosage: 17 G, UNK
     Route: 048
     Dates: end: 20170823

REACTIONS (1)
  - Inappropriate prescribing [Unknown]

NARRATIVE: CASE EVENT DATE: 20170823
